FAERS Safety Report 9642733 (Version 2)
Quarter: 2013Q4

REPORT INFORMATION
  Report Type: Spontaneous
  Country: BR (occurrence: BR)
  Receive Date: 20131024
  Receipt Date: 20131217
  Transmission Date: 20140711
  Serious: Yes (Other)
  Sender: FDA-Public Use
  Company Number: BR-ELI_LILLY_AND_COMPANY-BR201310004423

PATIENT
  Sex: Female
  Weight: 63 kg

DRUGS (6)
  1. HUMULIN N [Suspect]
     Indication: TYPE 2 DIABETES MELLITUS
     Dosage: 35 IU, EACH MORNING
     Route: 058
  2. HUMULIN N [Suspect]
     Dosage: 40 IU, EACH EVENING
     Route: 058
     Dates: start: 201212
  3. HUMULIN N [Suspect]
     Dosage: 20 IU, EACH EVENING
     Route: 058
     Dates: start: 1998
  4. HUMULIN N [Suspect]
     Dosage: 40 IU, EACH MORNING
     Route: 058
  5. METFORMINA                         /00082701/ [Concomitant]
     Indication: PRODUCT USED FOR UNKNOWN INDICATION
     Dosage: UNK, UNKNOWN
     Route: 065
  6. HIDROCLOROTIAZIDA [Concomitant]
     Indication: PRODUCT USED FOR UNKNOWN INDICATION
     Dosage: UNK, UNKNOWN
     Route: 065

REACTIONS (4)
  - Retinal fibrosis [Unknown]
  - Hypoglycaemia [Recovered/Resolved]
  - Drug ineffective [Unknown]
  - Hyperglycaemia [Not Recovered/Not Resolved]
